FAERS Safety Report 7577204-2 (Version None)
Quarter: 2011Q2

REPORT INFORMATION
  Report Type: 
  Country: None (occurrence: None)
  Receive Date: 20110621
  Receipt Date: 20110606
  Transmission Date: 20111010
  Serious: Yes (Hospitalization, Other)
  Sender: FDA-Public Use
  Company Number: AUR-APL-2011-02782

PATIENT
  Age: 46 Year
  Sex: Female

DRUGS (1)
  1. HYDROCHLOROTHIAZIDE [Suspect]
     Indication: HYPERTENSION
     Dosage: (25 MG), ORAL
     Route: 048

REACTIONS (11)
  - VOMITING [None]
  - LUNG INFILTRATION [None]
  - CENTRAL VENOUS PRESSURE DECREASED [None]
  - SHOCK [None]
  - DIZZINESS [None]
  - OXYGEN SATURATION DECREASED [None]
  - PULMONARY OEDEMA [None]
  - BLOOD PRESSURE DECREASED [None]
  - QRS AXIS ABNORMAL [None]
  - BODY TEMPERATURE INCREASED [None]
  - RALES [None]
